FAERS Safety Report 18810740 (Version 8)
Quarter: 2021Q4

REPORT INFORMATION
  Report Type: Report from Study
  Country: PT (occurrence: PT)
  Receive Date: 20210129
  Receipt Date: 20211125
  Transmission Date: 20220303
  Serious: Yes (Hospitalization)
  Sender: FDA-Public Use
  Company Number: NVSC2021PT013469

PATIENT
  Age: 50 Year
  Sex: Female
  Weight: 66 kg

DRUGS (14)
  1. SECUKINUMAB [Suspect]
     Active Substance: SECUKINUMAB
     Indication: Ankylosing spondylitis
     Dosage: UNK
     Route: 058
     Dates: start: 20190327
  2. ACEMETACIN [Concomitant]
     Active Substance: ACEMETACIN
     Indication: Ankylosing spondylitis
     Dosage: UNK
     Route: 065
     Dates: start: 20201230, end: 20210314
  3. ACEMETACIN [Concomitant]
     Active Substance: ACEMETACIN
     Indication: Musculoskeletal pain
  4. SULFASALAZINE [Concomitant]
     Active Substance: SULFASALAZINE
     Indication: Ankylosing spondylitis
     Dosage: 1000 MG, QD
     Route: 048
     Dates: start: 2011, end: 20190424
  5. SULFASALAZINE [Concomitant]
     Active Substance: SULFASALAZINE
     Dosage: 1 G, BID
     Route: 048
     Dates: start: 20190425, end: 20200108
  6. SULFASALAZINE [Concomitant]
     Active Substance: SULFASALAZINE
     Dosage: 1 G, QD
     Route: 048
     Dates: start: 20200109, end: 20210119
  7. ESOMEPRAZOLE [Concomitant]
     Active Substance: ESOMEPRAZOLE
     Indication: Prophylaxis
     Dosage: UNK
     Route: 065
     Dates: start: 20190225
  8. CALCIFEDIOL [Concomitant]
     Active Substance: CALCIFEDIOL
     Indication: Vitamin D deficiency
     Dosage: 0.266 MG, QMO
     Route: 048
     Dates: start: 201811
  9. DEFLAZACORT [Concomitant]
     Active Substance: DEFLAZACORT
     Indication: Ankylosing spondylitis
     Dosage: 6 MG, DAILY
     Route: 048
     Dates: start: 2010
  10. ACTIVELLE [Concomitant]
     Active Substance: ESTRADIOL\NORETHINDRONE ACETATE
     Indication: Menopause
     Dosage: 1.5 MG, DAILY
     Route: 048
     Dates: start: 2010
  11. METHOTREXATE [Concomitant]
     Active Substance: METHOTREXATE
     Indication: Ankylosing spondylitis
     Dosage: 12.5 MG, QW
     Route: 048
     Dates: start: 20111017, end: 20111218
  12. METHOTREXATE [Concomitant]
     Active Substance: METHOTREXATE
     Dosage: 15 MG, QW
     Route: 048
     Dates: start: 20111219, end: 20170716
  13. METHOTREXATE [Concomitant]
     Active Substance: METHOTREXATE
     Dosage: 17.5 MG, QW
     Route: 048
     Dates: start: 20170717, end: 201711
  14. ETODOLAC [Concomitant]
     Active Substance: ETODOLAC
     Indication: Ankylosing spondylitis
     Dosage: UNK
     Route: 065
     Dates: start: 20190225, end: 20201230

REACTIONS (1)
  - Pyelonephritis [Recovered/Resolved]

NARRATIVE: CASE EVENT DATE: 20210113
